FAERS Safety Report 17156974 (Version 2)
Quarter: 2020Q1

REPORT INFORMATION
  Report Type: Spontaneous
  Country: PL (occurrence: PL)
  Receive Date: 20191216
  Receipt Date: 20200116
  Transmission Date: 20200409
  Serious: Yes (Other)
  Sender: FDA-Public Use
  Company Number: PL-ROCHE-2491161

PATIENT
  Age: 73 Year
  Sex: Male

DRUGS (5)
  1. MYCOPHENOLATE MOFETIL. [Suspect]
     Active Substance: MYCOPHENOLATE MOFETIL
     Indication: THROMBOCYTOPENIA
     Route: 065
  2. RITUXIMAB. [Suspect]
     Active Substance: RITUXIMAB
     Indication: THROMBOCYTOPENIA
     Route: 065
  3. IMMUNOGLOBULIN HUMAN NORMAL [Suspect]
     Active Substance: HUMAN IMMUNOGLOBULIN G
     Indication: THROMBOCYTOPENIA
     Route: 065
  4. DAPSON [Suspect]
     Active Substance: DAPSONE
     Indication: THROMBOCYTOPENIA
     Route: 065
  5. CYCLOSPORINE. [Suspect]
     Active Substance: CYCLOSPORINE
     Indication: THROMBOCYTOPENIA
     Route: 065

REACTIONS (2)
  - Chronic lymphocytic leukaemia [Unknown]
  - Thrombocytopenia [Unknown]

NARRATIVE: CASE EVENT DATE: 201410
